FAERS Safety Report 9199582 (Version 2)
Quarter: 2013Q2

REPORT INFORMATION
  Report Type: Report from Study
  Country: US (occurrence: US)
  Receive Date: 20130329
  Receipt Date: 20130628
  Transmission Date: 20140414
  Serious: Yes (Hospitalization)
  Sender: FDA-Public Use
  Company Number: US-ABBOTT-13P-163-1066332-00

PATIENT
  Age: 20 Year
  Sex: Female
  Weight: 46.76 kg

DRUGS (7)
  1. HUMIRA [Suspect]
     Indication: CROHN^S DISEASE
     Dosage: LOADING DOSE
     Dates: start: 20130223, end: 20130223
  2. HUMIRA [Suspect]
  3. LEXAPRO [Concomitant]
     Indication: DEPRESSION
  4. GABAPENTIN [Concomitant]
     Indication: INSOMNIA
  5. PROTONIX [Concomitant]
     Indication: CROHN^S DISEASE
  6. SEROQUEL [Concomitant]
     Indication: DEPRESSION
  7. PENTASA [Concomitant]
     Indication: PRODUCT USED FOR UNKNOWN INDICATION

REACTIONS (3)
  - Binge drinking [Unknown]
  - Abdominal pain [Not Recovered/Not Resolved]
  - Binge drinking [Unknown]
